FAERS Safety Report 5085959-4 (Version None)
Quarter: 2006Q3

REPORT INFORMATION
  Report Type: 
  Country: None (occurrence: None)
  Receive Date: 20060822
  Receipt Date: 20060817
  Transmission Date: 20061208
  Serious: Yes (Hospitalization, Disabling, Other)
  Sender: FDA-Public Use
  Company Number: US-MERCK-0608USA04322

PATIENT
  Age: 80 Year
  Sex: Female

DRUGS (3)
  1. ZETIA [Suspect]
     Indication: HEART VALVE CALCIFICATION
     Route: 048
     Dates: start: 20060707, end: 20060803
  2. TOPROL-XL [Concomitant]
     Route: 065
  3. VASOTEC [Concomitant]
     Route: 065

REACTIONS (4)
  - DEHYDRATION [None]
  - IRRITABLE BOWEL SYNDROME [None]
  - OFF LABEL USE [None]
  - WEIGHT DECREASED [None]
